FAERS Safety Report 4598583-4 (Version None)
Quarter: 2005Q1

REPORT INFORMATION
  Report Type: 
  Country: None (occurrence: None)
  Receive Date: 20050304
  Receipt Date: 20050221
  Transmission Date: 20050727
  Serious: Yes (Other)
  Sender: FDA-Public Use
  Company Number: GB-ROCHE-396210

PATIENT
  Age: 96 Year
  Sex: Female

DRUGS (7)
  1. TAMIFLU [Suspect]
     Indication: DRUG USE FOR UNKNOWN INDICATION
     Dosage: CAPSULE TYPE: HARD
     Route: 048
     Dates: start: 20050126, end: 20050131
  2. CEFRADINE [Concomitant]
     Indication: DRUG USE FOR UNKNOWN INDICATION
     Dosage: TAKEN AT NIGHT
     Route: 065
  3. FRUSEMIDE [Concomitant]
     Indication: DRUG USE FOR UNKNOWN INDICATION
     Route: 065
  4. SENNA [Concomitant]
     Indication: DRUG USE FOR UNKNOWN INDICATION
     Dosage: TAKEN TWICE AT NIGHT.
     Route: 065
  5. TAMOXIFEN CITRATE [Concomitant]
     Indication: DRUG USE FOR UNKNOWN INDICATION
     Route: 065
  6. RISPERIDONE [Concomitant]
     Indication: DRUG USE FOR UNKNOWN INDICATION
     Route: 065
  7. PARACETAMOL [Concomitant]
     Indication: DRUG USE FOR UNKNOWN INDICATION
     Dosage: 2 X 500 MG TAKEN QDS.
     Route: 065

REACTIONS (4)
  - CHROMATURIA [None]
  - HAEMATURIA [None]
  - PROTEINURIA [None]
  - URINE ODOUR ABNORMAL [None]
